FAERS Safety Report 19698972 (Version 1)
Quarter: 2021Q3

REPORT INFORMATION
  Report Type: Spontaneous
  Country: US (occurrence: US)
  Receive Date: 20210813
  Receipt Date: 20210813
  Transmission Date: 20211014
  Serious: Yes (Death, Hospitalization, Other)
  Sender: FDA-Public Use
  Company Number: US-HIKMA PHARMACEUTICALS USA INC.-US-H14001-21-03541

PATIENT
  Age: 32 Year
  Sex: Male

DRUGS (3)
  1. COLCHICINE. [Suspect]
     Active Substance: COLCHICINE
     Indication: MYOCARDITIS
     Dosage: 32.4 MG TO 54 MG
     Route: 048
  2. COLCHICINE. [Suspect]
     Active Substance: COLCHICINE
     Indication: PERICARDITIS
  3. HYDROXYZINE [Suspect]
     Active Substance: HYDROXYZINE HYDROCHLORIDE
     Indication: PRODUCT USED FOR UNKNOWN INDICATION
     Dosage: UNKNOWN
     Route: 048

REACTIONS (33)
  - Off label use [Unknown]
  - Hypotension [Unknown]
  - Skin exfoliation [Unknown]
  - Blood lactic acid increased [Unknown]
  - Disseminated intravascular coagulation [Unknown]
  - Neutropenia [Unknown]
  - Acidosis [Unknown]
  - Lipase increased [Unknown]
  - Drug abuse [Unknown]
  - Diarrhoea [Unknown]
  - Nausea [Unknown]
  - Hyperphosphataemia [Unknown]
  - Troponin increased [Unknown]
  - Hypoglycaemia [Unknown]
  - Blister [Unknown]
  - Haemorrhage [Unknown]
  - Acute kidney injury [Unknown]
  - Pancytopenia [Unknown]
  - Abdominal pain [Unknown]
  - Vomiting [Unknown]
  - Hypomagnesaemia [Unknown]
  - Skin discolouration [Unknown]
  - Leukocytosis [Unknown]
  - Hyperkalaemia [Unknown]
  - Shock [Unknown]
  - Multiple organ dysfunction syndrome [Fatal]
  - Toxicity to various agents [Unknown]
  - Accidental overdose [Unknown]
  - Hypocalcaemia [Unknown]
  - Generalised oedema [Unknown]
  - Respiratory distress [Unknown]
  - Oliguria [Unknown]
  - Rhabdomyolysis [Unknown]
